FAERS Safety Report 8587537 (Version 6)
Quarter: 2014Q1

REPORT INFORMATION
  Report Type: Spontaneous
  Country: US (occurrence: US)
  Receive Date: 20120531
  Receipt Date: 20140131
  Transmission Date: 20141002
  Serious: Yes (Disabling, Other)
  Sender: FDA-Public Use
  Company Number: US-ASTRAZENECA-2012SE33493

PATIENT
  Age: 48 Year
  Sex: Male

DRUGS (35)
  1. NEXIUM [Suspect]
     Indication: GASTRIC DISORDER
     Route: 048
     Dates: start: 2003, end: 2005
  2. NEXIUM [Suspect]
     Indication: GASTROOESOPHAGEAL REFLUX DISEASE
     Route: 048
     Dates: start: 2003, end: 2005
  3. NEXIUM [Suspect]
     Indication: GASTROOESOPHAGEAL REFLUX DISEASE
     Route: 048
     Dates: start: 2003, end: 2005
  4. NEXIUM [Suspect]
     Indication: GASTRIC DISORDER
     Route: 048
     Dates: start: 20050506
  5. NEXIUM [Suspect]
     Indication: GASTROOESOPHAGEAL REFLUX DISEASE
     Route: 048
     Dates: start: 20050506
  6. NEXIUM [Suspect]
     Indication: GASTROOESOPHAGEAL REFLUX DISEASE
     Route: 048
     Dates: start: 20050506
  7. NEXIUM [Suspect]
     Indication: GASTRIC DISORDER
     Route: 048
     Dates: start: 20090526
  8. NEXIUM [Suspect]
     Indication: GASTROOESOPHAGEAL REFLUX DISEASE
     Route: 048
     Dates: start: 20090526
  9. NEXIUM [Suspect]
     Indication: GASTROOESOPHAGEAL REFLUX DISEASE
     Route: 048
     Dates: start: 20090526
  10. PRILOSEC [Suspect]
     Route: 048
  11. PREVACID [Suspect]
     Indication: GASTROOESOPHAGEAL REFLUX DISEASE
     Route: 065
     Dates: start: 2005, end: 2009
  12. PREVACID [Suspect]
     Indication: GASTRIC DISORDER
     Route: 065
     Dates: start: 2005, end: 2009
  13. FLUOXETINE [Concomitant]
     Route: 048
     Dates: start: 20090512
  14. CLONAZEPAM [Concomitant]
     Dates: start: 20050321
  15. HYDROCODONE IBUPROF [Concomitant]
     Dosage: 7.5 MG/200 MG TAKE ONE TABLET TWO TIMES A DAY AND PRN
     Route: 048
     Dates: start: 20050601
  16. DIOVAN [Concomitant]
     Route: 048
     Dates: start: 20050316
  17. CITALOPRAM [Concomitant]
     Route: 048
     Dates: start: 20050105
  18. CITALOPRAM [Concomitant]
     Route: 048
     Dates: start: 20050503
  19. CITALOPRAM [Concomitant]
     Route: 048
     Dates: start: 20100616
  20. RAZADYNE ER [Concomitant]
     Route: 048
     Dates: start: 20090601
  21. MORPHINE SULPHATE [Concomitant]
     Dosage: ONE TABLET TWO TIMES PRN
     Route: 048
     Dates: start: 20090526
  22. TOPIRAMATE [Concomitant]
     Route: 048
     Dates: start: 20090519
  23. PROMETHAZINE [Concomitant]
     Dosage: ONE TABLET EVERY SIX HOURS PRN
     Route: 048
     Dates: start: 20090518
  24. LISINOPRIL [Concomitant]
     Dates: start: 20100616
  25. OXYCODONE [Concomitant]
     Indication: PAIN
     Dates: start: 20100616
  26. METFORMIN [Concomitant]
     Dates: start: 20100616
  27. HYDROCODONE AP [Concomitant]
     Indication: PAIN
     Dosage: 7.5 /500 MG AS NEEDED
     Dates: start: 20100616
  28. NAMENDA [Concomitant]
     Indication: DEMENTIA
     Dates: start: 20100616
  29. FEXOFENADINE [Concomitant]
     Dates: start: 20100616
  30. PROTONIX [Concomitant]
     Indication: GASTRIC DISORDER
     Route: 048
     Dates: start: 20090426
  31. JANUVIA [Concomitant]
  32. GABAPENTIN [Concomitant]
     Indication: NERVE INJURY
  33. COMBIVENT [Concomitant]
     Indication: CHRONIC OBSTRUCTIVE PULMONARY DISEASE
  34. XANAX [Concomitant]
     Indication: DEPRESSION
  35. PERCOCET [Concomitant]

REACTIONS (10)
  - Spinal fracture [Unknown]
  - Spinal compression fracture [Unknown]
  - Back disorder [Unknown]
  - Intervertebral disc degeneration [Unknown]
  - Spinal column stenosis [Unknown]
  - Fracture [Unknown]
  - Arthritis [Unknown]
  - Diabetes mellitus [Unknown]
  - Depression [Unknown]
  - Lumbar spinal stenosis [Unknown]
